FAERS Safety Report 9321061 (Version 1)
Quarter: 2013Q2

REPORT INFORMATION
  Report Type: Spontaneous
  Country: IT (occurrence: None)
  Receive Date: 20130528
  Receipt Date: 20130528
  Transmission Date: 20140414
  Serious: Yes (Hospitalization, Other)
  Sender: FDA-Public Use
  Company Number: 2011AP003175

PATIENT
  Age: 30 Year
  Sex: Male
  Weight: 70 kg

DRUGS (3)
  1. FERRIPROX [Suspect]
     Indication: IRON OVERLOAD
     Route: 048
     Dates: start: 20050106, end: 20050429
  2. DSEFERRIOXAMINE [Concomitant]
  3. EUTIROX [Concomitant]

REACTIONS (2)
  - Agranulocytosis [None]
  - Pyrexia [None]
